FAERS Safety Report 15566872 (Version 2)
Quarter: 2018Q4

REPORT INFORMATION
  Report Type: Report from Study
  Country: JP (occurrence: JP)
  Receive Date: 20181030
  Receipt Date: 20181108
  Transmission Date: 20190205
  Serious: Yes (Death)
  Sender: FDA-Public Use
  Company Number: JP-BEH-2018096369

PATIENT
  Age: 78 Year
  Sex: Female
  Weight: 53 kg

DRUGS (20)
  1. ONOACT [Concomitant]
     Active Substance: LANDIOLOL HYDROCHLORIDE
     Dosage: UNK
     Route: 065
     Dates: start: 20180812, end: 20180814
  2. BERIPLEX P/N [Suspect]
     Active Substance: COAGULATION FACTOR IX HUMAN\COAGULATION FACTOR VII HUMAN\COAGULATION FACTOR X HUMAN\PROTEIN C\PROTEIN S HUMAN\PROTHROMBIN
     Indication: SURGERY
  3. FUROSEMIDE. [Concomitant]
     Active Substance: FUROSEMIDE
     Dosage: UNK
     Route: 048
     Dates: end: 20180811
  4. MUCOSTA [Concomitant]
     Active Substance: REBAMIPIDE
     Dosage: UNK
     Route: 048
     Dates: end: 20180811
  5. CANDESARTAN. [Concomitant]
     Active Substance: CANDESARTAN
     Dosage: UNK
     Route: 048
     Dates: end: 20180810
  6. TAKEPRON [Concomitant]
     Active Substance: LANSOPRAZOLE
     Dosage: UNK
     Route: 065
     Dates: start: 20180811, end: 20180816
  7. FENTANYL. [Concomitant]
     Active Substance: FENTANYL
     Dosage: UNK
     Route: 065
     Dates: start: 20180811, end: 20180812
  8. INOVAN                             /00360702/ [Concomitant]
     Active Substance: DOPAMINE HYDROCHLORIDE
     Dosage: UNK
     Route: 065
     Dates: start: 20180812, end: 20180816
  9. SLOW K [Concomitant]
     Active Substance: POTASSIUM CHLORIDE
     Dosage: UNK
     Route: 048
     Dates: end: 20180811
  10. BERIPLEX P/N [Suspect]
     Active Substance: COAGULATION FACTOR IX HUMAN\COAGULATION FACTOR VII HUMAN\COAGULATION FACTOR X HUMAN\PROTEIN C\PROTEIN S HUMAN\PROTHROMBIN
     Indication: HAEMORRHAGE
     Dosage: 1850 IU, UNK
     Route: 042
     Dates: start: 20180811
  11. WARFARIN [Concomitant]
     Active Substance: WARFARIN
     Indication: HEART VALVE REPLACEMENT
     Dosage: 4 MG, UNK
     Route: 048
     Dates: start: 199001, end: 20180810
  12. PROPOFOL. [Concomitant]
     Active Substance: PROPOFOL
     Dosage: UNK
     Route: 065
     Dates: start: 20180811, end: 20180812
  13. KAYTWO [Concomitant]
     Active Substance: MENATETRENONE
     Indication: PROCOAGULANT THERAPY
     Dosage: 10 MG, UNK
     Route: 065
     Dates: start: 20180811, end: 20180811
  14. DILTIAZEM. [Concomitant]
     Active Substance: DILTIAZEM
     Dosage: UNK
     Route: 065
     Dates: start: 20180811, end: 20180812
  15. ALDACTONE [Concomitant]
     Active Substance: SPIRONOLACTONE
     Dosage: UNK
     Route: 048
     Dates: end: 20180811
  16. ROHYPNOL [Concomitant]
     Active Substance: FLUNITRAZEPAM
     Dosage: UNK
     Route: 048
     Dates: end: 20180810
  17. CEFAZOLIN [Concomitant]
     Active Substance: CEFAZOLIN
     Indication: PROPHYLAXIS
     Dosage: UNK
     Route: 065
     Dates: start: 20180811, end: 20180812
  18. NICARDIPINE [Concomitant]
     Active Substance: NICARDIPINE
     Dosage: UNK
     Route: 065
     Dates: start: 20180812, end: 20180812
  19. PERSANTIN [Concomitant]
     Active Substance: DIPYRIDAMOLE
     Dosage: UNK
     Route: 048
     Dates: end: 20180811
  20. TRANSAMIN [Concomitant]
     Active Substance: TRANEXAMIC ACID
     Dosage: UNK
     Route: 065
     Dates: start: 20180811, end: 20180811

REACTIONS (1)
  - Death [Fatal]

NARRATIVE: CASE EVENT DATE: 20180816
